FAERS Safety Report 18619467 (Version 1)
Quarter: 2020Q4

REPORT INFORMATION
  Report Type: Spontaneous
  Country: US (occurrence: US)
  Receive Date: 20201215
  Receipt Date: 20201215
  Transmission Date: 20210114
  Serious: Yes (Other)
  Sender: FDA-Public Use
  Company Number: US-SA-2020SA356451

PATIENT

DRUGS (2)
  1. LANTUS [Suspect]
     Active Substance: INSULIN GLARGINE
     Dosage: 32 ML
     Route: 065
  2. LANTUS [Suspect]
     Active Substance: INSULIN GLARGINE
     Dosage: 31 ML
     Route: 065

REACTIONS (4)
  - Product quality issue [Unknown]
  - Diabetes mellitus inadequate control [Unknown]
  - Discomfort [Unknown]
  - Visual impairment [Unknown]
